FAERS Safety Report 11590803 (Version 2)
Quarter: 2015Q4

REPORT INFORMATION
  Report Type: Spontaneous
  Country: FR (occurrence: FR)
  Receive Date: 20151002
  Receipt Date: 20151005
  Transmission Date: 20160304
  Serious: No
  Sender: FDA-Public Use
  Company Number: FR-ALLERGAN-1520219US

PATIENT
  Sex: Male

DRUGS (2)
  1. OZURDEX [Suspect]
     Active Substance: DEXAMETHASONE
     Indication: RETINAL VEIN OCCLUSION
     Dosage: 0.7 MG, SINGLE
     Route: 031
     Dates: start: 201506, end: 201506
  2. OZURDEX [Suspect]
     Active Substance: DEXAMETHASONE
     Dosage: 0.7 MG, SINGLE
     Route: 031
     Dates: start: 201402, end: 201402

REACTIONS (3)
  - Injection site extravasation [Unknown]
  - Intraocular pressure increased [Unknown]
  - Intraocular pressure decreased [Recovered/Resolved]

NARRATIVE: CASE EVENT DATE: 2015
